FAERS Safety Report 9828622 (Version 1)
Quarter: 2013Q4

REPORT INFORMATION
  Report Type: Spontaneous
  Country: US (occurrence: None)
  Receive Date: 20131120
  Receipt Date: 20131120
  Transmission Date: 20140711
  Serious: No
  Sender: FDA-Public Use
  Company Number: 1000047627

PATIENT
  Age: 38 Year
  Sex: Female

DRUGS (5)
  1. VIIBRYD (VILAZODONE HYDROCHLORIDE) (TABLETS) [Suspect]
     Indication: DEPRESSION
     Dosage: 10 MG (10 MG, 1 IN 1 D), ORAL
     Route: 048
     Dates: start: 201307, end: 201307
  2. VIIBRYD (VILAZODONE HYDROCHLORIDE) (TABLETS) [Suspect]
     Indication: DEPRESSION
     Dosage: 20 MG (20 MG, 1 IN 1 D), ORAL
     Route: 048
     Dates: start: 201307, end: 201307
  3. VIIBRYD (VILAZODONE HYDROCHLORIDE) (TABLETS) [Suspect]
     Indication: DEPRESSION
  4. ZOLOFT (SERTRALINE HYDROCHLORIDE) [Suspect]
     Dates: end: 201307
  5. ZOLOFT (SERTRALINE HYDROCHLORIDE) [Suspect]
     Dosage: 25 MG (25 MG, 1 IN 1 D)
     Dates: start: 201307, end: 201307

REACTIONS (4)
  - Nausea [None]
  - Influenza like illness [None]
  - Emotional disorder [None]
  - Feeling abnormal [None]
